FAERS Safety Report 9783381 (Version 1)
Quarter: 2013Q4

REPORT INFORMATION
  Report Type: Spontaneous
  Country: FR (occurrence: FR)
  Receive Date: 20131226
  Receipt Date: 20131226
  Transmission Date: 20140711
  Serious: Yes (Hospitalization)
  Sender: FDA-Public Use
  Company Number: FR-SA-2013SA131540

PATIENT
  Age: 77 Year
  Sex: Male

DRUGS (1)
  1. LOVENOX [Suspect]
     Indication: AORTIC VALVE REPLACEMENT
     Route: 042
     Dates: start: 20130418, end: 20130430

REACTIONS (5)
  - Heparin-induced thrombocytopenia test positive [Recovered/Resolved]
  - Heparin-induced thrombocytopenia test [Recovered/Resolved]
  - Heparin-induced thrombocytopenia [Recovered/Resolved]
  - Heparin-induced thrombocytopenia test [Recovered/Resolved]
  - Heparin-induced thrombocytopenia test positive [Recovered/Resolved]
